FAERS Safety Report 24672730 (Version 2)
Quarter: 2024Q4

REPORT INFORMATION
  Report Type: Report from Study
  Country: CN (occurrence: CN)
  Receive Date: 20241127
  Receipt Date: 20241204
  Transmission Date: 20250114
  Serious: Yes (Hospitalization)
  Sender: AMGEN
  Company Number: CN-AMGEN-CHNNI2024232047

PATIENT
  Age: 61 Year
  Sex: Female
  Weight: 52 kg

DRUGS (10)
  1. DENOSUMAB [Suspect]
     Active Substance: DENOSUMAB
     Indication: Osteoporosis postmenopausal
     Dosage: 60 MILLIGRAM
     Route: 058
     Dates: start: 20231122
  2. NIFEDIPINE [Concomitant]
     Active Substance: NIFEDIPINE
     Dosage: 30 MILLIGRAM
     Route: 048
     Dates: start: 20230517
  3. Weisu [Concomitant]
     Dosage: 5 GRAM
     Route: 048
     Dates: start: 20230814
  4. Lan qin [Concomitant]
     Dosage: 10 MILLILITER
     Route: 048
     Dates: start: 20231112
  5. CALCITRIOL [Concomitant]
     Active Substance: CALCITRIOL
     Dosage: 0.25 MILLIGRAM
     Route: 048
     Dates: start: 20231121
  6. CALCIUM CARBONATE\CHOLECALCIFEROL [Concomitant]
     Active Substance: CALCIUM CARBONATE\CHOLECALCIFEROL
     Dosage: 0.6 GRAM
     Route: 048
     Dates: start: 20231122
  7. RIVAROXABAN [Concomitant]
     Active Substance: RIVAROXABAN
     Dosage: 10 MILLIGRAM
     Route: 048
     Dates: start: 20231125
  8. LEVOFLOXACIN [Concomitant]
     Active Substance: LEVOFLOXACIN
     Dosage: 1 UNK
     Route: 048
     Dates: start: 20240422, end: 20240429
  9. VALSARTAN AND HYDROCHLOROTHIAZIDE [Concomitant]
     Active Substance: HYDROCHLOROTHIAZIDE\VALSARTAN
     Dosage: 1 UNK (CONTAINS 80 MG V)
     Route: 048
     Dates: start: 20230517
  10. VITAMIN B2 [Concomitant]
     Active Substance: RIBOFLAVIN
     Dosage: 5 MILLIGRAM
     Route: 048
     Dates: start: 20241029, end: 202411

REACTIONS (5)
  - Gastritis [Recovered/Resolved]
  - Gastritis [Recovered/Resolved]
  - Large intestine polyp [Recovered/Resolved]
  - Gastric polyps [Recovered/Resolved]
  - Colorectal adenoma [Not Recovered/Not Resolved]

NARRATIVE: CASE EVENT DATE: 20240501
